FAERS Safety Report 9447391 (Version 4)
Quarter: 2013Q4

REPORT INFORMATION
  Report Type: Report from Study
  Country: US (occurrence: US)
  Receive Date: 20130808
  Receipt Date: 20131002
  Transmission Date: 20140711
  Serious: Yes (Hospitalization)
  Sender: FDA-Public Use
  Company Number: US-PFIZER INC-2013206577

PATIENT
  Age: 63 Year
  Sex: Female
  Weight: 111.57 kg

DRUGS (17)
  1. KEPPRA [Concomitant]
     Indication: CONVULSION
     Dosage: 500 MG, 2X/DAY
     Route: 048
     Dates: start: 200704
  2. MELOXICAM [Concomitant]
     Indication: OSTEOARTHRITIS
     Dosage: 15 MG, 1X/DAY
     Route: 048
     Dates: start: 2001
  3. AGGRENOX [Concomitant]
     Indication: ANTIPLATELET THERAPY
     Dosage: 200 MG, 1X/DAY
     Route: 048
     Dates: start: 200704
  4. TRILEPTAL [Concomitant]
     Indication: PROPHYLAXIS
     Dosage: 600 MG, 2 AM 1 QHS
     Route: 048
     Dates: start: 200704
  5. BUMETANIDE [Concomitant]
     Indication: OEDEMA PERIPHERAL
     Dosage: 2 MG, 2X/DAY
     Route: 048
     Dates: start: 20121201
  6. NORCO [Concomitant]
     Indication: PROCEDURAL PAIN
     Dosage: 1 TAB, PRN
     Route: 048
  7. MOBIC [Concomitant]
     Indication: PROCEDURAL PAIN
     Dosage: 1 TAB, PRN
     Route: 048
  8. COLACE [Concomitant]
     Indication: FAECES HARD
     Dosage: 1 TAB, QD
     Route: 048
  9. BIOTIN [Concomitant]
     Indication: SUPPLEMENTATION THERAPY
     Dosage: 1 DF (1 TAB), 1X/DAY
     Route: 048
     Dates: start: 20130510
  10. CARVEDILOL [Concomitant]
     Indication: CARDIOVASCULAR EVENT PROPHYLAXIS
     Dosage: 6.25 MG, 1X/DAY
     Route: 048
     Dates: start: 20121101
  11. DIGOXIN [Concomitant]
     Indication: ATRIAL FIBRILLATION
     Dosage: 125 MEQ, 1X/DAY
     Route: 048
     Dates: start: 20121101
  12. TOFACITINIB CITRATE [Suspect]
     Indication: PSORIASIS
     Dosage: 10 MG, 2X/DAY
     Route: 048
     Dates: start: 20111018, end: 20130701
  13. COUMADIN [Concomitant]
     Indication: ATRIAL FIBRILLATION
     Dosage: 5 MG, 1X/DAY
     Route: 048
     Dates: start: 20120813
  14. DIOVAN / HCT [Concomitant]
     Indication: HYPERTENSION
     Dosage: 320MG/25 MG, QD
     Route: 048
     Dates: start: 2001
  15. METOPROLOL ER [Concomitant]
     Indication: HYPERTENSION
     Dosage: 100 MG, 1X/DAY
     Route: 048
     Dates: start: 2001
  16. METFORMIN [Concomitant]
     Indication: TYPE 2 DIABETES MELLITUS
     Dosage: 1000 MG, 2X/DAY
     Route: 048
     Dates: start: 200704
  17. SIMVASTATIN [Concomitant]
     Indication: DYSLIPIDAEMIA
     Dosage: 20 MG, 1X/DAY
     Route: 048
     Dates: start: 2005

REACTIONS (1)
  - Endometrial adenocarcinoma [Recovered/Resolved]
